FAERS Safety Report 22709008 (Version 2)
Quarter: 2023Q4

REPORT INFORMATION
  Report Type: Report from Study
  Country: CA (occurrence: CA)
  Receive Date: 20230717
  Receipt Date: 20231005
  Transmission Date: 20240109
  Serious: Yes (Hospitalization, Other)
  Sender: FDA-Public Use
  Company Number: CA-JNJFOC-20220650350

PATIENT
  Age: 67 Year
  Sex: Female
  Weight: 59.02 kg

DRUGS (3)
  1. STELARA [Suspect]
     Active Substance: USTEKINUMAB
     Indication: Crohn^s disease
     Dosage: EXPIRY: JAN-2025
     Route: 042
     Dates: start: 20220506
  2. STELARA [Suspect]
     Active Substance: USTEKINUMAB
     Dosage: THERAPY START DATE AND END DATE WAS MENTIONED AS 16-MAY-2023?EXPIRY DATE- 31-JAN-2026
     Route: 058
  3. AZATHIOPRINE [Concomitant]
     Active Substance: AZATHIOPRINE
     Indication: Crohn^s disease
     Route: 048

REACTIONS (6)
  - Post procedural infection [Unknown]
  - Wound [Unknown]
  - Skin cancer [Unknown]
  - Intestinal obstruction [Unknown]
  - Skin lesion [Recovered/Resolved]
  - Skin infection [Recovered/Resolved]

NARRATIVE: CASE EVENT DATE: 20220101
